FAERS Safety Report 4445177-7 (Version None)
Quarter: 2004Q3

REPORT INFORMATION
  Report Type: 
  Country: None (occurrence: None)
  Receive Date: 20040819
  Receipt Date: 20040412
  Transmission Date: 20050211
  Serious: Yes (Life-Threatening, Hospitalization)
  Sender: FDA-Public Use
  Company Number: 2004000104

PATIENT
  Age: 87 Year
  Sex: Female

DRUGS (5)
  1. NORVASC [Suspect]
     Indication: BLOOD PRESSURE INCREASED
     Dosage: 5 MG (DAILY), ORAL
     Route: 048
     Dates: start: 20031111
  2. ATORVASTATIN (ATORVASTATIN) [Concomitant]
  3. ALENDRONATE SODIUM [Concomitant]
  4. LEVOTHYROXINE SODIUM [Concomitant]
  5. LANSOPRAZOLE [Concomitant]

REACTIONS (1)
  - SYNCOPE [None]
